FAERS Safety Report 5635934-3 (Version None)
Quarter: 2008Q1

REPORT INFORMATION
  Report Type: 
  Country: None (occurrence: None)
  Receive Date: 20080224
  Receipt Date: 20080221
  Transmission Date: 20080703
  Serious: Yes (Life-Threatening)
  Sender: FDA-Public Use
  Company Number: PHFR2008GB00931

PATIENT
  Age: 67 Year
  Sex: Male
  Weight: 60 kg

DRUGS (5)
  1. RIVASTIGMINE [Suspect]
     Indication: DEMENTIA
     Dosage: 3 MG, UNK
     Route: 048
     Dates: start: 20060509, end: 20070730
  2. ENTACAPONE [Concomitant]
     Indication: PARKINSON'S DISEASE
     Dosage: 1 DF, BID
     Route: 065
  3. MADOPAR [Concomitant]
     Indication: PARKINSON'S DISEASE
     Dosage: 1 DF, QD
     Route: 048
  4. MADOPAR [Concomitant]
     Dosage: 3 DF, 6QD
     Route: 048
  5. MIRTAZAPINE [Concomitant]
     Indication: DEPRESSION
     Dosage: 30 MG, QD
     Route: 048

REACTIONS (1)
  - CIRCULATORY COLLAPSE [None]
